FAERS Safety Report 4363841-5 (Version None)
Quarter: 2004Q2

REPORT INFORMATION
  Report Type: 
  Country: None (occurrence: None)
  Receive Date: 20040521
  Receipt Date: 20040423
  Transmission Date: 20050107
  Serious: Yes (Hospitalization, Other)
  Sender: FDA-Public Use
  Company Number: 2004-01659

PATIENT
  Age: 72 Year
  Sex: Male

DRUGS (2)
  1. IMMUCYST (BCG - IT (CONNAUGHT)), AVENTIS PASTEUR LTD.,  LOT NOT REP [Suspect]
     Indication: BLADDER CANCER
     Dosage: 81 MG  B.IN.,  BLADDER
     Dates: start: 20031203, end: 20031219
  2. NAFTOPIDIL [Concomitant]

REACTIONS (1)
  - PNEUMONIA [None]
